FAERS Safety Report 10028502 (Version 1)
Quarter: 2014Q1

REPORT INFORMATION
  Report Type: Spontaneous
  Country: US (occurrence: None)
  Receive Date: 20140307
  Receipt Date: 20140307
  Transmission Date: 20141002
  Serious: Yes (Hospitalization)
  Sender: FDA-Public Use
  Company Number: 2014AP001667

PATIENT
  Age: 34 Year
  Sex: Male

DRUGS (2)
  1. ZONISAMIDE [Suspect]
  2. PHENYTOIN [Suspect]
     Dosage: AM

REACTIONS (10)
  - Psychotic disorder [None]
  - Nystagmus [None]
  - Hyperreflexia [None]
  - Drug interaction [None]
  - Gait disturbance [None]
  - Dizziness [None]
  - Asthenia [None]
  - Sleep disorder [None]
  - Disturbance in attention [None]
  - Toxicity to various agents [None]
